FAERS Safety Report 18741678 (Version 2)
Quarter: 2021Q1

REPORT INFORMATION
  Report Type: Report from Study
  Country: CA (occurrence: CA)
  Receive Date: 20210114
  Receipt Date: 20210322
  Transmission Date: 20210419
  Serious: Yes (Hospitalization)
  Sender: FDA-Public Use
  Company Number: CA-OTSUKA-2020_032805

PATIENT
  Sex: Female

DRUGS (1)
  1. ASTX727 [Suspect]
     Active Substance: CEDAZURIDINE\DECITABINE
     Indication: MYELODYSPLASTIC SYNDROME
     Dosage: 135 MG (35 MG OF DECITABINE AND 100 MG OF CEDAZURIDINE) , UNK
     Route: 065
     Dates: start: 20201116

REACTIONS (3)
  - Blood count abnormal [Unknown]
  - Infection [Unknown]
  - Therapy cessation [Unknown]
